FAERS Safety Report 21399612 (Version 3)
Quarter: 2023Q4

REPORT INFORMATION
  Report Type: Spontaneous
  Country: NO (occurrence: NO)
  Receive Date: 20221001
  Receipt Date: 20231031
  Transmission Date: 20240110
  Serious: Yes (Other)
  Sender: FDA-Public Use
  Company Number: NO-TEVA-2022-NO-2077559

PATIENT
  Age: 43 Year
  Sex: Female

DRUGS (1)
  1. AJOVY [Suspect]
     Active Substance: FREMANEZUMAB-VFRM
     Indication: Migraine with aura
     Route: 065
     Dates: end: 20220616

REACTIONS (2)
  - Heavy menstrual bleeding [Recovering/Resolving]
  - Menstrual clots [Recovering/Resolving]
